FAERS Safety Report 15324194 (Version 1)
Quarter: 2018Q3

REPORT INFORMATION
  Report Type: Spontaneous
  Country: US (occurrence: US)
  Receive Date: 20180828
  Receipt Date: 20180828
  Transmission Date: 20181010
  Serious: Yes (Hospitalization, Other)
  Sender: FDA-Public Use
  Company Number: US-RECKITT BENCKISER HEALTHCARE INT LIMITED-RB-82817-2017

PATIENT
  Age: 30 Year
  Sex: Male

DRUGS (1)
  1. UNSPECIFIED DEXTROMETHORPHAN HYDROBROMIDE [Suspect]
     Active Substance: DEXTROMETHORPHAN HYDROBROMIDE
     Indication: DRUG ABUSE
     Dosage: APPROXIMATELY 944 MILLILITERS OF COUGH SYRUP, CONTAINING AN ESTIMATED 2832 MILLIGRAMS OF DXM
     Route: 048

REACTIONS (5)
  - Psychotic disorder [Unknown]
  - Drug screen false positive [Unknown]
  - Agitation [Unknown]
  - Intentional overdose [Unknown]
  - Drug abuse [Unknown]
